FAERS Safety Report 17293845 (Version 1)
Quarter: 2020Q1

REPORT INFORMATION
  Report Type: Spontaneous
  Country: US (occurrence: US)
  Receive Date: 20200120
  Receipt Date: 20200120
  Transmission Date: 20200409
  Serious: Yes (Disabling)
  Sender: FDA-Public Use
  Company Number: None

PATIENT
  Age: 48 Year
  Sex: Male
  Weight: 68.4 kg

DRUGS (1)
  1. LAMOTRIGINE 100 MG [Suspect]
     Active Substance: LAMOTRIGINE
     Indication: BIPOLAR II DISORDER
     Dosage: ?          QUANTITY:1 TABLET(S);?
     Route: 048
     Dates: start: 20191225

REACTIONS (3)
  - Loss of personal independence in daily activities [None]
  - Fatigue [None]
  - Dizziness [None]

NARRATIVE: CASE EVENT DATE: 20200118
